FAERS Safety Report 19874375 (Version 1)
Quarter: 2021Q3

REPORT INFORMATION
  Report Type: Spontaneous
  Country: US (occurrence: US)
  Receive Date: 20210922
  Receipt Date: 20210922
  Transmission Date: 20211014
  Serious: No
  Sender: FDA-Public Use
  Company Number: US-SA-2021SA308549

PATIENT
  Age: 36 Year
  Sex: Female

DRUGS (3)
  1. DUPIXENT [Suspect]
     Active Substance: DUPILUMAB
     Indication: SEBORRHOEIC DERMATITIS
     Dosage: 300 MG, QOW
     Route: 058
     Dates: start: 20210305
  2. PANTOPRAZOLE [Concomitant]
     Active Substance: PANTOPRAZOLE
     Dosage: 300 MG
  3. PIMECROLIMUS. [Concomitant]
     Active Substance: PIMECROLIMUS
     Dosage: 300 MG

REACTIONS (3)
  - Seborrhoeic dermatitis [Not Recovered/Not Resolved]
  - Condition aggravated [Not Recovered/Not Resolved]
  - Product use in unapproved indication [Unknown]

NARRATIVE: CASE EVENT DATE: 2021
